FAERS Safety Report 14194160 (Version 1)
Quarter: 2017Q4

REPORT INFORMATION
  Report Type: Spontaneous
  Country: US (occurrence: None)
  Receive Date: 20171115
  Receipt Date: 20171115
  Transmission Date: 20180321
  Serious: No
  Sender: FDA-Public Use
  Company Number: None

PATIENT
  Sex: Female
  Weight: 51.26 kg

DRUGS (3)
  1. FORTEO [Suspect]
     Active Substance: TERIPARATIDE
     Indication: LUMBAR SPINAL STENOSIS
     Route: 058
     Dates: start: 201703
  2. FORTEO [Suspect]
     Active Substance: TERIPARATIDE
     Indication: OSTEOPOROSIS
     Route: 058
     Dates: start: 201703
  3. FORTEO [Suspect]
     Active Substance: TERIPARATIDE
     Indication: OSTEOARTHRITIS
     Route: 058
     Dates: start: 201703

REACTIONS (2)
  - Rib fracture [None]
  - Fall [None]
